FAERS Safety Report 21435213 (Version 7)
Quarter: 2023Q1

REPORT INFORMATION
  Report Type: Spontaneous
  Country: CA (occurrence: CA)
  Receive Date: 20221010
  Receipt Date: 20230314
  Transmission Date: 20230417
  Serious: Yes (Other)
  Sender: FDA-Public Use
  Company Number: CA-PFIZER INC-202200638511

PATIENT
  Age: 38 Year
  Sex: Male
  Weight: 119 kg

DRUGS (12)
  1. ABRILADA [Suspect]
     Active Substance: ADALIMUMAB-AFZB
     Indication: Crohn^s disease
     Dosage: 1 DF EVERY 2 WEEKS. 160MG AT WEEK 0, 80 MG AT WEEK 2, THEN 40 MG FROM WEEK 4 EVERY 2 WEEKS
     Route: 058
     Dates: start: 20220421
  2. ABRILADA [Suspect]
     Active Substance: ADALIMUMAB-AFZB
     Dosage: 1 DF EVERY 2 WEEKS. 160MG AT WEEK 0, 80 MG AT WEEK 2, THEN 40 MG FROM WEEK 4 EVERY 2 WEEKS
     Route: 058
     Dates: start: 20220520
  3. ABRILADA [Suspect]
     Active Substance: ADALIMUMAB-AFZB
     Dosage: 1 DF, 160 MG AT WEEK 0, 80 MG AT WEEK 2, THEN 40 MG FROM WEEK 4 EVERY 2 WEEKS
     Route: 058
     Dates: start: 20220601
  4. ABRILADA [Suspect]
     Active Substance: ADALIMUMAB-AFZB
     Dosage: 1 DF, 160 MG AT WEEK 0, 80 MG AT WEEK 2, THEN 40 MG FROM WEEK 4 EVERY 2 WEEKS
     Route: 058
     Dates: start: 20220615
  5. ABRILADA [Suspect]
     Active Substance: ADALIMUMAB-AFZB
     Dosage: 1 DF EVERY 2 WEEKS, 160MG AT WEEK 0, 80 MG AT WEEK 2, THEN 40 MG FROM WEEK 4 EVERY 2 WEEKS
     Route: 058
     Dates: start: 20220713
  6. ABRILADA [Suspect]
     Active Substance: ADALIMUMAB-AFZB
     Dosage: 1 DF, EVERY 2 WEEKS, 160MG AT WEEK 0, 80 MG AT WEEK 2, THEN 40 MG FROM WEEK 4 EVERY 2 WEEKS
     Route: 058
     Dates: start: 20220824
  7. ABRILADA [Suspect]
     Active Substance: ADALIMUMAB-AFZB
     Dosage: 1 DF, EVERY 2 WEEKS, 160MG AT WEEK 0, 80 MG AT WEEK 2, THEN 40 MG FROM WEEK 4 EVERY 2 WEEKS
     Route: 058
     Dates: start: 20220907
  8. ABRILADA [Suspect]
     Active Substance: ADALIMUMAB-AFZB
     Dosage: 1 DF, EVERY 2 WEEKS, 160MG AT WEEK 0, 80 MG AT WEEK 2, THEN 40 MG FROM WEEK 4 EVERY 2 WEEKS
     Route: 058
     Dates: start: 20230111
  9. ABRILADA [Suspect]
     Active Substance: ADALIMUMAB-AFZB
     Dosage: 40 MG, EVERY 2 WEEKS
     Route: 058
     Dates: start: 20230125
  10. ABRILADA [Suspect]
     Active Substance: ADALIMUMAB-AFZB
     Dosage: 40 MG, EVERY 2 WEEKS
     Route: 058
     Dates: start: 20230208
  11. ABRILADA [Suspect]
     Active Substance: ADALIMUMAB-AFZB
     Dosage: 40 MG, EVERY 2 WEEKS
     Route: 058
     Dates: start: 20230301
  12. ABRILADA [Suspect]
     Active Substance: ADALIMUMAB-AFZB
     Dosage: 40 MG, EVERY 2 WEEKS
     Route: 058
     Dates: start: 20230307

REACTIONS (10)
  - Eye operation [Not Recovered/Not Resolved]
  - Fatigue [Recovered/Resolved]
  - Heart rate decreased [Not Recovered/Not Resolved]
  - Blood pressure increased [Not Recovered/Not Resolved]
  - COVID-19 [Recovered/Resolved]
  - Tooth extraction [Unknown]
  - Hyperaesthesia [Not Recovered/Not Resolved]
  - Pain [Recovering/Resolving]
  - Off label use [Unknown]
  - Inappropriate schedule of product administration [Unknown]

NARRATIVE: CASE EVENT DATE: 20220401
